FAERS Safety Report 8449146-1 (Version None)
Quarter: 2012Q2

REPORT INFORMATION
  Report Type: 
  Country: None (occurrence: None)
  Receive Date: 20120612
  Receipt Date: 20120529
  Transmission Date: 20120825
  Serious: Yes (Other)
  Sender: FDA-Public Use
  Company Number: 2012P1035302

PATIENT
  Age: 41 Year
  Sex: Female

DRUGS (2)
  1. VANCOMYCIN [Suspect]
     Indication: MENINGITIS BACTERIAL
  2. CEFTRIAXONE [Suspect]
     Indication: MENINGITIS BACTERIAL

REACTIONS (1)
  - LINEAR IGA DISEASE [None]
